FAERS Safety Report 5940852-7 (Version None)
Quarter: 2008Q4

REPORT INFORMATION
  Report Type: 
  Country: None (occurrence: None)
  Receive Date: 20081031
  Receipt Date: 20081016
  Transmission Date: 20090506
  Serious: Yes (Hospitalization)
  Sender: FDA-Public Use
  Company Number: DSM-2008-00938

PATIENT
  Age: 63 Year
  Sex: Male

DRUGS (2)
  1. OLMESARTAN MEDOXOMIL [Suspect]
     Indication: HYPERTENSION
     Dates: start: 20080615, end: 20080917
  2. DICLOFENAC SODIUM [Suspect]
     Dates: start: 20080901, end: 20080901

REACTIONS (2)
  - CONDITION AGGRAVATED [None]
  - THROMBOCYTOPENIC PURPURA [None]
